FAERS Safety Report 6017234-5 (Version None)
Quarter: 2008Q4

REPORT INFORMATION
  Report Type: 
  Country: None (occurrence: None)
  Receive Date: 20081219
  Receipt Date: 20081208
  Transmission Date: 20090506
  Serious: Yes (Hospitalization)
  Sender: FDA-Public Use
  Company Number: 1-16941339

PATIENT
  Age: 88 Year
  Sex: Male
  Weight: 68.0396 kg

DRUGS (2)
  1. AMMONIUM LACTATE [Suspect]
     Indication: THERAPEUTIC SKIN CARE TOPICAL
     Dosage: TO ARMS AND FEET DAILY, CUTANEOUS
     Route: 003
  2. . [Concomitant]

REACTIONS (6)
  - ARTERIOSCLEROSIS [None]
  - CAROTID ARTERY STENOSIS [None]
  - GAIT DISTURBANCE [None]
  - SINUS CONGESTION [None]
  - TRANSIENT ISCHAEMIC ATTACK [None]
  - VERTEBRAL ARTERY STENOSIS [None]
